FAERS Safety Report 20419224 (Version 1)
Quarter: 2022Q1

REPORT INFORMATION
  Report Type: Spontaneous
  Country: US (occurrence: US)
  Receive Date: 20220203
  Receipt Date: 20220203
  Transmission Date: 20220423
  Serious: Yes (Other)
  Sender: FDA-Public Use
  Company Number: US-KYOWAKIRIN-2022AKK001192

PATIENT
  Age: 70 Year
  Sex: Female

DRUGS (5)
  1. FILGRASTIM [Suspect]
     Active Substance: FILGRASTIM
     Indication: Neutrophil count decreased
     Dosage: UNK UNK, QD
     Route: 065
  2. MITOMYCIN [Suspect]
     Active Substance: MITOMYCIN
     Indication: Metastases to peritoneum
     Dosage: UNK
     Route: 033
  3. MITOMYCIN [Suspect]
     Active Substance: MITOMYCIN
     Dosage: UNK
     Route: 065
  4. CARBOPLATIN [Suspect]
     Active Substance: CARBOPLATIN
     Indication: Metastases to peritoneum
     Dosage: UNK
     Route: 033
  5. CARBOPLATIN [Suspect]
     Active Substance: CARBOPLATIN
     Dosage: UNK
     Route: 065

REACTIONS (6)
  - Toxic encephalopathy [Recovered/Resolved]
  - Pancytopenia [Unknown]
  - Myelosuppression [Unknown]
  - Leukocytosis [Unknown]
  - Off label use [Unknown]
  - Off label use [Unknown]
